FAERS Safety Report 11427653 (Version 1)
Quarter: 2015Q3

REPORT INFORMATION
  Report Type: Spontaneous
  Country: US (occurrence: US)
  Receive Date: 20150828
  Receipt Date: 20150828
  Transmission Date: 20151125
  Serious: No
  Sender: FDA-Public Use
  Company Number: US-ASTRAZENECA-2012BM10367

PATIENT
  Age: 63 Year
  Sex: Female

DRUGS (2)
  1. BYDUREON [Suspect]
     Active Substance: EXENATIDE
     Route: 058
     Dates: start: 20120624
  2. BYETTA [Suspect]
     Active Substance: EXENATIDE
     Dosage: UNK
     Route: 058

REACTIONS (3)
  - Injection site mass [Unknown]
  - Increased appetite [Unknown]
  - Product quality issue [Unknown]

NARRATIVE: CASE EVENT DATE: 20120624
